FAERS Safety Report 19599588 (Version 1)
Quarter: 2021Q3

REPORT INFORMATION
  Report Type: Spontaneous
  Country: GB (occurrence: GB)
  Receive Date: 20210722
  Receipt Date: 20210722
  Transmission Date: 20211014
  Serious: Yes (Hospitalization, Other)
  Sender: FDA-Public Use
  Company Number: GB-PFIZER INC-2021863567

PATIENT
  Age: 77 Year
  Sex: Female
  Weight: 73.4 kg

DRUGS (6)
  1. PARACETAMOL [Concomitant]
     Active Substance: ACETAMINOPHEN
     Indication: ILL-DEFINED DISORDER
     Dosage: UNK
  2. LETROZOLE. [Concomitant]
     Active Substance: LETROZOLE
     Indication: ILL-DEFINED DISORDER
     Dosage: UNK
  3. RAMIPRIL. [Concomitant]
     Active Substance: RAMIPRIL
     Indication: ILL-DEFINED DISORDER
     Dosage: UNK
     Dates: end: 20210618
  4. ADCAL [CALCIUM CARBONATE] [Concomitant]
     Indication: ILL-DEFINED DISORDER
     Dosage: UNK
  5. ZOLEDRONIC ACID [Suspect]
     Active Substance: ZOLEDRONIC ACID
     Indication: OSTEOPOROTIC FRACTURE
     Dosage: 5MG STAT DOSE
     Route: 042
     Dates: start: 20210612, end: 20210612
  6. ATORVASTATIN CALCIUM. [Concomitant]
     Active Substance: ATORVASTATIN CALCIUM
     Indication: ILL-DEFINED DISORDER
     Dosage: UNK

REACTIONS (2)
  - Off label use [Unknown]
  - Acute kidney injury [Not Recovered/Not Resolved]

NARRATIVE: CASE EVENT DATE: 20210612
